FAERS Safety Report 10264749 (Version 1)
Quarter: 2014Q2

REPORT INFORMATION
  Report Type: Spontaneous
  Country: JP (occurrence: None)
  Receive Date: 20140624
  Receipt Date: 20140624
  Transmission Date: 20141212
  Serious: Yes (Hospitalization, Other)
  Sender: FDA-Public Use
  Company Number: 2014JUB00014

PATIENT
  Age: 69 Year
  Sex: Female

DRUGS (1)
  1. RISPERIDONE [Suspect]

REACTIONS (9)
  - Pancreatitis [None]
  - Alanine aminotransferase increased [None]
  - Blood alkaline phosphatase increased [None]
  - Hepatic enzyme increased [None]
  - Blood creatine phosphokinase increased [None]
  - Mental status changes [None]
  - Musculoskeletal stiffness [None]
  - Extrapyramidal disorder [None]
  - Cholelithiasis [None]
